FAERS Safety Report 7591645-9 (Version None)
Quarter: 2011Q3

REPORT INFORMATION
  Report Type: 
  Country: None (occurrence: None)
  Receive Date: 20110701
  Receipt Date: 20110701
  Transmission Date: 20111222
  Serious: Yes (Hospitalization)
  Sender: FDA-Public Use
  Company Number: None

PATIENT
  Age: 52 Year
  Sex: Female
  Weight: 51.7 kg

DRUGS (1)
  1. CEFTRIAXONE [Suspect]
     Indication: PNEUMONIA
     Dosage: 1 GRAM DAILY IV 1 DOSE
     Route: 042

REACTIONS (1)
  - FLUSHING [None]
